FAERS Safety Report 6552949-1 (Version None)
Quarter: 2010Q1

REPORT INFORMATION
  Report Type: 
  Country: None (occurrence: None)
  Receive Date: 20100122
  Receipt Date: 20100108
  Transmission Date: 20100710
  Serious: Yes (Other)
  Sender: FDA-Public Use
  Company Number: DSJ-2010-00296

PATIENT
  Age: 75 Year
  Sex: Male
  Weight: 57 kg

DRUGS (7)
  1. OLMESARTAN MEDOXOMIL [Suspect]
     Indication: HYPERTENSION
     Dosage: 20 MG (20 MG,1 IN 1 D),PER ORAL
     Route: 048
     Dates: start: 20080726
  2. MEVALOTIN (PRAVASTATIN SODIUM) PREPARATION FOR ORAL USE(NOS)) (PRAVAST [Suspect]
     Indication: HYPERLIPIDAEMIA
     Dosage: 5 MG (5 MG,1 IN 1 D),PER ORAL
     Route: 048
     Dates: start: 20090212
  3. ARICEPT [Suspect]
     Indication: DEMENTIA WITH LEWY BODIES
     Dosage: 3 MG (3 MG,1 IN 1 D),PER ORAL ; 5 MG (5 MG,1 IN 1 D),PER ORAL
     Route: 048
     Dates: start: 20090216, end: 20090302
  4. ARICEPT [Suspect]
     Indication: DEMENTIA WITH LEWY BODIES
     Dosage: 3 MG (3 MG,1 IN 1 D),PER ORAL ; 5 MG (5 MG,1 IN 1 D),PER ORAL
     Route: 048
     Dates: start: 20090303, end: 20090731
  5. FLIVAS (NAFTOPIDIL) (NAFTOPIDIL) [Suspect]
     Indication: BENIGN PROSTATIC HYPERPLASIA
     Dosage: 50 MG (50 MG,1 IN 1 D),PER ORAL
     Route: 048
     Dates: start: 20090324
  6. NORVASC [Suspect]
     Indication: HYPERTENSION
     Dosage: 2.5 MG (2.5 MG,1 IN 1 D),PER ORAL
     Route: 048
     Dates: start: 20070802
  7. ELSAMET [CHIMAPHILA UMBELLATA EXT. POPULUS TREMULA EXT.] [Suspect]
     Indication: BENIGN PROSTATIC HYPERPLASIA
     Dosage: 1 DOSAGE FORMS (2 IN 1 D),PER ORAL
     Route: 048
     Dates: start: 20090810

REACTIONS (2)
  - METASTASES TO BONE [None]
  - PROSTATE CANCER METASTATIC [None]
